FAERS Safety Report 23871400 (Version 2)
Quarter: 2024Q3

REPORT INFORMATION
  Report Type: Spontaneous
  Country: US (occurrence: US)
  Receive Date: 20240519
  Receipt Date: 20240705
  Transmission Date: 20241016
  Serious: Yes (Other)
  Sender: AUROBINDO
  Company Number: US-AUROBINDO-AUR-APL-2024-022859

PATIENT
  Age: 7 Decade
  Sex: Female

DRUGS (3)
  1. CYCLOPHOSPHAMIDE [Suspect]
     Active Substance: CYCLOPHOSPHAMIDE
     Indication: Cerebellar syndrome
     Dosage: UNK
     Route: 042
  2. METHYLPREDNISOLONE [Suspect]
     Active Substance: METHYLPREDNISOLONE
     Indication: Cerebellar syndrome
     Dosage: 1 GRAM, ONCE A DAY FOR 3 DAYS
     Route: 042
  3. MYCOPHENOLATE MOFETIL [Suspect]
     Active Substance: MYCOPHENOLATE MOFETIL
     Indication: Cerebellar syndrome
     Dosage: UNK
     Route: 065

REACTIONS (1)
  - Drug ineffective [Unknown]
